FAERS Safety Report 22160599 (Version 1)
Quarter: 2023Q1

REPORT INFORMATION
  Report Type: Spontaneous
  Country: US (occurrence: None)
  Receive Date: 20230329
  Receipt Date: 20230329
  Transmission Date: 20230418
  Serious: Yes (Hospitalization)
  Sender: FDA-Public Use
  Company Number: None

PATIENT
  Age: 36 Year
  Sex: Male
  Weight: 81.4 kg

DRUGS (1)
  1. TACROLIMUS [Suspect]
     Active Substance: TACROLIMUS

REACTIONS (5)
  - Affect lability [None]
  - Depression [None]
  - Amnesia [None]
  - Accidental overdose [None]
  - Product substitution issue [None]

NARRATIVE: CASE EVENT DATE: 20230323
